FAERS Safety Report 4906028-7 (Version None)
Quarter: 2006Q1

REPORT INFORMATION
  Report Type: 
  Country: None (occurrence: None)
  Receive Date: 20060206
  Receipt Date: 20060123
  Transmission Date: 20060701
  Serious: Yes (Hospitalization)
  Sender: FDA-Public Use
  Company Number: 2006BI001190

PATIENT
  Age: 46 Year
  Sex: Male
  Weight: 95.2554 kg

DRUGS (2)
  1. AVONEX [Suspect]
     Indication: MULTIPLE SCLEROSIS
     Dosage: 30 UG; QW; IM
     Route: 030
  2. COUMADIN [Concomitant]

REACTIONS (9)
  - BEDRIDDEN [None]
  - DYSURIA [None]
  - HYPERTENSION [None]
  - LATEX ALLERGY [None]
  - MONOPLEGIA [None]
  - MULTIPLE SCLEROSIS [None]
  - NERVOUSNESS [None]
  - PAIN [None]
  - PNEUMONIA ASPIRATION [None]
